FAERS Safety Report 6264009-8 (Version None)
Quarter: 2009Q3

REPORT INFORMATION
  Report Type: 
  Country: None (occurrence: None)
  Receive Date: 20090708
  Receipt Date: 20090708
  Transmission Date: 20100115
  Serious: Yes (Hospitalization)
  Sender: FDA-Public Use
  Company Number: None

PATIENT
  Age: 62 Year
  Sex: Male
  Weight: 112 kg

DRUGS (1)
  1. LISINOPRIL [Suspect]
     Indication: HYPERTENSION
     Dosage: 40 MG EVERY DAY PO
     Route: 048
     Dates: start: 20080229, end: 20080521

REACTIONS (8)
  - ANAEMIA [None]
  - BUNDLE BRANCH BLOCK RIGHT [None]
  - CHOKING [None]
  - DEHYDRATION [None]
  - ELECTROCARDIOGRAM CHANGE [None]
  - HYPERKALAEMIA [None]
  - PLATELET COUNT INCREASED [None]
  - PSEUDOHYPERKALAEMIA [None]
